FAERS Safety Report 9375664 (Version 2)
Quarter: 2013Q3

REPORT INFORMATION
  Report Type: Spontaneous
  Country: CA (occurrence: CA)
  Receive Date: 20130628
  Receipt Date: 20130829
  Transmission Date: 20140515
  Serious: Yes (Other)
  Sender: FDA-Public Use
  Company Number: CHPA2013CA010441

PATIENT
  Age: 45 Year
  Sex: Female

DRUGS (3)
  1. HABITROL [Suspect]
     Indication: SMOKING CESSATION THERAPY
     Dosage: 7 MG, QD
     Route: 062
     Dates: start: 2013
  2. PRIVATE LABEL [Suspect]
     Dosage: 21 MG, QD
     Route: 062
     Dates: start: 201304, end: 2013
  3. PRIVATE LABEL [Suspect]
     Dosage: 14 MG, QD
     Route: 062
     Dates: start: 2013, end: 2013

REACTIONS (3)
  - Spinal fracture [Recovering/Resolving]
  - Fall [Recovered/Resolved]
  - Insomnia [Not Recovered/Not Resolved]
